FAERS Safety Report 8899328 (Version 1)
Quarter: 2012Q4

REPORT INFORMATION
  Report Type: 
  Country: US (occurrence: US)
  Receive Date: 20121108
  Receipt Date: 20121108
  Transmission Date: 20130627
  Serious: No
  Sender: FDA-Public Use
  Company Number: US-AMGEN-USASP2012036388

PATIENT
  Age: 42 Year
  Sex: Female

DRUGS (4)
  1. ENBREL [Suspect]
     Indication: PSORIASIS
     Dosage: 50 mg, 2 times/wk
     Dates: start: 201205
  2. HYDROXYZINE HCL [Concomitant]
     Dosage: 1 mg, UNK
  3. TRIAMCINOLONE [Concomitant]
     Dosage: 0.1 %, UNK
  4. DESONIDE DISODIUM PHOSPHATE [Concomitant]
     Dosage: 0.05 %, UNK

REACTIONS (2)
  - Injection site pain [Unknown]
  - Drug ineffective [Unknown]
